FAERS Safety Report 9297870 (Version 3)
Quarter: 2014Q2

REPORT INFORMATION
  Report Type: Spontaneous
  Country: US (occurrence: None)
  Receive Date: 20130515
  Receipt Date: 20140616
  Transmission Date: 20141212
  Serious: Yes (Hospitalization, Other)
  Sender: FDA-Public Use
  Company Number: JPI-P-031628

PATIENT
  Age: 40 Year
  Sex: Female
  Weight: 93 kg

DRUGS (7)
  1. XYREM [Suspect]
     Indication: NARCOLEPSY
     Dosage: (2.25 GM, 2 IN 1 D)
     Route: 048
     Dates: start: 20090420, end: 2009
  2. ARMOUR THYROID (THYROID) [Concomitant]
  3. METHOTREXATE (METHOTREXATE SODIUM) [Concomitant]
  4. FOLIC ACID (FOLIC ACID) [Concomitant]
  5. ORENCIA (ABATACEPT) [Concomitant]
  6. ADDERALL (AMFETAMINE ASPARTATE,  AMFETAMINE SULFATE, DEXAMFETAMINE SACCHARATE, DEXAMFETAMINE SULFATE) [Concomitant]
  7. PROVIGIL (MODAFINIL) [Concomitant]

REACTIONS (1)
  - Surgery [None]
